FAERS Safety Report 23424825 (Version 1)
Quarter: 2024Q1

REPORT INFORMATION
  Report Type: Spontaneous
  Country: US (occurrence: None)
  Receive Date: 20240121
  Receipt Date: 20240121
  Transmission Date: 20240409
  Serious: Yes (Other)
  Sender: FDA-Public Use
  Company Number: US-MDD US Operations-MDD202308-003148

PATIENT
  Age: 80 Year
  Sex: Male

DRUGS (5)
  1. APOKYN [Suspect]
     Active Substance: APOMORPHINE HYDROCHLORIDE
     Indication: Parkinson^s disease
     Route: 058
     Dates: start: 20230803
  2. APOKYN [Suspect]
     Active Substance: APOMORPHINE HYDROCHLORIDE
     Route: 058
     Dates: start: 20230804
  3. APOKYN [Suspect]
     Active Substance: APOMORPHINE HYDROCHLORIDE
     Dosage: UNK DOSE, CAN USE UP TO FIVE TIMES A DAY (30MG PEN)
     Route: 058
     Dates: start: 20231201, end: 20231204
  4. APOKYN [Suspect]
     Active Substance: APOMORPHINE HYDROCHLORIDE
     Dosage: UNK DOSE, CAN USE UP TO FIVE TIMES A DAY (30MG PEN)
     Route: 058
     Dates: start: 20231201, end: 20231204
  5. ROPINIROLE [Suspect]
     Active Substance: ROPINIROLE
     Indication: Product used for unknown indication
     Dosage: NOT PROVIDED

REACTIONS (19)
  - Parkinson^s disease [Unknown]
  - Feeling hot [Unknown]
  - Limb discomfort [Unknown]
  - Tremor [Unknown]
  - Illness [Unknown]
  - Pulse abnormal [Recovered/Resolved]
  - Malaise [Unknown]
  - Tremor [Recovered/Resolved]
  - Hallucination [Unknown]
  - Heart rate increased [Unknown]
  - Inadvertent injection air bubble [Unknown]
  - Dyspnoea [Recovered/Resolved]
  - Nausea [Recovered/Resolved]
  - Dizziness [Recovered/Resolved]
  - Arthralgia [Recovered/Resolved]
  - Lethargy [Recovered/Resolved]
  - Blood pressure abnormal [Recovered/Resolved]
  - Nausea [Recovered/Resolved]
  - Therapy non-responder [Unknown]

NARRATIVE: CASE EVENT DATE: 20230803
